FAERS Safety Report 10652307 (Version 1)
Quarter: 2014Q4

REPORT INFORMATION
  Report Type: Spontaneous
  Country: FR (occurrence: FR)
  Receive Date: 20141215
  Receipt Date: 20141215
  Transmission Date: 20150529
  Serious: Yes (Other)
  Sender: FDA-Public Use
  Company Number: FR-ROCHE-1506147

PATIENT
  Age: 86 Year
  Sex: Female

DRUGS (4)
  1. CALCIPARINE [Suspect]
     Active Substance: HEPARIN CALCIUM
     Indication: PULMONARY EMBOLISM
     Dosage: DOSE= 0.3 THREE TIMES THEN 0.15 THREE TIMES DAILY
     Route: 058
     Dates: start: 20141030, end: 20141105
  2. CYMEVAN [Suspect]
     Active Substance: GANCICLOVIR
     Indication: CYTOMEGALOVIRUS TEST POSITIVE
     Route: 042
     Dates: start: 20141030, end: 20141105
  3. SEROPRAM [Suspect]
     Active Substance: CITALOPRAM HYDROBROMIDE
     Indication: DEPRESSION
     Dosage: ONGOING TREATMENT
     Route: 048
     Dates: start: 20141025
  4. INNOHEP [Concomitant]
     Active Substance: TINZAPARIN SODIUM

REACTIONS (1)
  - Petechiae [Recovering/Resolving]

NARRATIVE: CASE EVENT DATE: 20141104
